FAERS Safety Report 7511139-6 (Version None)
Quarter: 2011Q2

REPORT INFORMATION
  Report Type: 
  Country: None (occurrence: None)
  Receive Date: 20110531
  Receipt Date: 20110518
  Transmission Date: 20111010
  Serious: No
  Sender: FDA-Public Use
  Company Number: US-JNJFOC-20110509285

PATIENT
  Sex: Female
  Weight: 62.6 kg

DRUGS (2)
  1. FENTANYL [Suspect]
     Indication: FIBROMYALGIA
     Route: 062
     Dates: start: 20110501
  2. FENTANYL [Suspect]
     Indication: ARTHRITIS
     Route: 062
     Dates: start: 20110501

REACTIONS (3)
  - DRUG DISPENSING ERROR [None]
  - EXPIRED DRUG ADMINISTERED [None]
  - PAIN [None]
